FAERS Safety Report 14126154 (Version 2)
Quarter: 2018Q1

REPORT INFORMATION
  Report Type: Spontaneous
  Country: US (occurrence: US)
  Receive Date: 20171025
  Receipt Date: 20180112
  Transmission Date: 20180508
  Serious: Yes (Life-Threatening, Hospitalization, Other)
  Sender: FDA-Public Use
  Company Number: US-ELI_LILLY_AND_COMPANY-US201710008259

PATIENT
  Age: 60 Year
  Sex: Male
  Weight: 120 kg

DRUGS (1)
  1. TRULICITY [Suspect]
     Active Substance: DULAGLUTIDE
     Indication: TYPE 2 DIABETES MELLITUS
     Dosage: 1.5 MG, WEEKLY (1/W)
     Route: 058
     Dates: start: 20170308, end: 20170810

REACTIONS (5)
  - Multiple organ dysfunction syndrome [Unknown]
  - Systemic inflammatory response syndrome [Unknown]
  - Acute kidney injury [Unknown]
  - Respiratory disorder [Unknown]
  - Pancreatitis [Unknown]

NARRATIVE: CASE EVENT DATE: 20170810
